FAERS Safety Report 16290718 (Version 1)
Quarter: 2019Q2

REPORT INFORMATION
  Report Type: Spontaneous
  Country: CA (occurrence: CA)
  Receive Date: 20190509
  Receipt Date: 20190509
  Transmission Date: 20190711
  Serious: Yes (Other)
  Sender: FDA-Public Use
  Company Number: CA-BAYER-2019-087701

PATIENT
  Age: 44 Year
  Sex: Female

DRUGS (21)
  1. ALENDRONIC ACID [Suspect]
     Active Substance: ALENDRONIC ACID
     Indication: PRODUCT USED FOR UNKNOWN INDICATION
     Dosage: UNK
     Route: 065
  2. ENBREL [Suspect]
     Active Substance: ETANERCEPT
     Indication: RHEUMATOID ARTHRITIS
     Dosage: 50 MG, OW
     Route: 058
  3. XELJANZ [Suspect]
     Active Substance: TOFACITINIB CITRATE
     Indication: RHEUMATOID ARTHRITIS
     Dosage: 2 MG, QD
     Route: 048
  4. METHOTREXATE. [Suspect]
     Active Substance: METHOTREXATE
     Indication: RHEUMATOID ARTHRITIS
     Dosage: 20 MG, OW
     Route: 048
  5. MOBICOX [Suspect]
     Active Substance: MELOXICAM
     Indication: PRODUCT USED FOR UNKNOWN INDICATION
     Dosage: UNK
     Route: 048
  6. RANITIDINE. [Suspect]
     Active Substance: RANITIDINE
     Indication: PRODUCT USED FOR UNKNOWN INDICATION
     Dosage: 300 MG, QD
     Route: 048
  7. DEPO-MEDROL [Suspect]
     Active Substance: METHYLPREDNISOLONE ACETATE
     Indication: RHEUMATOID ARTHRITIS
     Dosage: UNK
     Route: 014
  8. PREDNISONE. [Suspect]
     Active Substance: PREDNISONE
     Indication: RHEUMATOID ARTHRITIS
     Dosage: UNK
     Route: 048
  9. OXYCOCET [Suspect]
     Active Substance: ACETAMINOPHEN\OXYCODONE HYDROCHLORIDE
     Indication: PRODUCT USED FOR UNKNOWN INDICATION
     Dosage: UNK
     Route: 048
  10. ALEVE [Suspect]
     Active Substance: NAPROXEN SODIUM
     Indication: PRODUCT USED FOR UNKNOWN INDICATION
     Dosage: UNK, QD
     Route: 048
  11. ALEVE [Suspect]
     Active Substance: NAPROXEN SODIUM
     Indication: PRODUCT USED FOR UNKNOWN INDICATION
     Dosage: 500 MG, QD
     Route: 048
  12. AMITRIPTYLINE HYDROCHLORIDE. [Suspect]
     Active Substance: AMITRIPTYLINE HYDROCHLORIDE
     Indication: PRODUCT USED FOR UNKNOWN INDICATION
     Dosage: 75 MG, QD
     Route: 048
  13. AZATHIOPRINE. [Suspect]
     Active Substance: AZATHIOPRINE
     Indication: PRODUCT USED FOR UNKNOWN INDICATION
     Dosage: 150 MG
     Route: 065
  14. SEPTRA [Suspect]
     Active Substance: SULFAMETHOXAZOLE\TRIMETHOPRIM
     Indication: PRODUCT USED FOR UNKNOWN INDICATION
     Dosage: UNK
     Route: 065
  15. ESOMEPRAZOLE MAGNESIUM TRIHYDRATE [Suspect]
     Active Substance: ESOMEPRAZOLE MAGNESIUM
     Indication: PRODUCT USED FOR UNKNOWN INDICATION
     Dosage: UNK
     Route: 065
  16. LYRICA [Suspect]
     Active Substance: PREGABALIN
     Indication: RHEUMATOID ARTHRITIS
     Dosage: 300 MG, QD
     Route: 048
  17. SULFASALAZINE. [Suspect]
     Active Substance: SULFASALAZINE
     Indication: RHEUMATOID ARTHRITIS
     Dosage: 1 G, QD
     Route: 048
  18. HUMIRA [Suspect]
     Active Substance: ADALIMUMAB
     Indication: PRODUCT USED FOR UNKNOWN INDICATION
     Dosage: 40 MG
     Route: 058
  19. PANTOLOC [PANTOPRAZOLE] [Suspect]
     Active Substance: PANTOPRAZOLE SODIUM
     Indication: PRODUCT USED FOR UNKNOWN INDICATION
     Dosage: UNK
     Route: 065
  20. FOLIC ACID. [Concomitant]
     Active Substance: FOLIC ACID
     Indication: PRODUCT USED FOR UNKNOWN INDICATION
     Dosage: UNK
  21. HYDROXYCHLOROQUINE [Concomitant]
     Active Substance: HYDROXYCHLOROQUINE
     Indication: PRODUCT USED FOR UNKNOWN INDICATION
     Dosage: UNK

REACTIONS (51)
  - Fibromyalgia [Unknown]
  - Joint swelling [Unknown]
  - Rash [Unknown]
  - Synovial fluid analysis [Unknown]
  - Ulcer [Unknown]
  - Dry eye [Unknown]
  - Dyspnoea [Unknown]
  - Interstitial lung disease [Unknown]
  - Wheezing [Unknown]
  - Cushingoid [Unknown]
  - Musculoskeletal stiffness [Unknown]
  - Synovial cyst [Unknown]
  - Abdominal pain [Unknown]
  - Arthralgia [Unknown]
  - Dry mouth [Unknown]
  - Erythema [Unknown]
  - Eye irritation [Unknown]
  - Malaise [Unknown]
  - Nausea [Unknown]
  - Pain [Unknown]
  - Pruritus [Unknown]
  - Feeling jittery [Unknown]
  - Lung disorder [Unknown]
  - Musculoskeletal pain [Unknown]
  - Nodule [Unknown]
  - Peripheral swelling [Unknown]
  - Rheumatoid arthritis [Unknown]
  - Rheumatoid nodule [Unknown]
  - Tenderness [Unknown]
  - Conjunctivitis [Unknown]
  - Therapeutic product effect decreased [Unknown]
  - Joint effusion [Unknown]
  - Neoplasm malignant [Unknown]
  - Ocular hyperaemia [Unknown]
  - Pleuritic pain [Unknown]
  - Thrombosis [Unknown]
  - Visual impairment [Unknown]
  - Antinuclear antibody positive [Unknown]
  - Atelectasis [Unknown]
  - Crepitations [Unknown]
  - Eye pain [Unknown]
  - Pain in extremity [Unknown]
  - Pneumonia [Unknown]
  - Scleritis [Unknown]
  - Bursitis [Unknown]
  - Flank pain [Unknown]
  - Impaired work ability [Unknown]
  - Infection [Unknown]
  - Photophobia [Unknown]
  - Swelling face [Unknown]
  - Tenosynovitis stenosans [Unknown]
